FAERS Safety Report 4494340-8 (Version None)
Quarter: 2004Q4

REPORT INFORMATION
  Report Type: 
  Country: None (occurrence: None)
  Receive Date: 20041102
  Receipt Date: 20041014
  Transmission Date: 20050328
  Serious: Yes (Death, Hospitalization, Other)
  Sender: FDA-Public Use
  Company Number: JP_041004869

PATIENT
  Age: 66 Year
  Sex: Male

DRUGS (7)
  1. ONCOVIN [Suspect]
     Indication: MULTIPLE MYELOMA
     Dates: start: 19991201
  2. DOXORUBICIN HCL [Concomitant]
  3. DEXAMETHASONE [Concomitant]
  4. MELPHALAN [Concomitant]
  5. PREDNISOLONE [Concomitant]
  6. INTERFERON [Concomitant]
  7. THALIDOMIDE (THALIDOMIDE PHARMION) [Concomitant]

REACTIONS (5)
  - INTERSTITIAL LUNG DISEASE [None]
  - NEUTROPHIL COUNT DECREASED [None]
  - PNEUMONIA STAPHYLOCOCCAL [None]
  - RASH MACULO-PAPULAR [None]
  - STAPHYLOCOCCAL SEPSIS [None]
